FAERS Safety Report 5354879-X (Version None)
Quarter: 2007Q2

REPORT INFORMATION
  Report Type: 
  Country: None (occurrence: None)
  Receive Date: 20070611
  Receipt Date: 20070419
  Transmission Date: 20071010
  Serious: Yes (Hospitalization)
  Sender: FDA-Public Use
  Company Number: 2007US000865

PATIENT
  Age: 74 Year
  Sex: Female

DRUGS (8)
  1. VESICARE [Suspect]
     Indication: NOCTURIA
     Dosage: 5 MG, ORAL
     Route: 048
     Dates: start: 20060101, end: 20070201
  2. VESICARE [Suspect]
     Indication: NOCTURIA
     Dosage: 5 MG, ORAL
     Route: 048
     Dates: start: 20070417
  3. PLAVIX [Concomitant]
  4. ASPIRIN [Concomitant]
  5. SYNTHROID [Concomitant]
  6. DIOVAN [Concomitant]
  7. CLONIDINE [Concomitant]
  8. CELEBREX [Concomitant]

REACTIONS (4)
  - ASTHENIA [None]
  - GASTROINTESTINAL DISORDER [None]
  - NOCTURIA [None]
  - POLLAKIURIA [None]
